FAERS Safety Report 10409111 (Version 1)
Quarter: 2014Q2

REPORT INFORMATION
  Report Type: Spontaneous
  Country: US (occurrence: None)
  Receive Date: 20140604
  Receipt Date: 20140604
  Transmission Date: 20141212
  Serious: No
  Sender: FDA-Public Use
  Company Number: 163-POMAL-14051081

PATIENT
  Age: 49 Year
  Sex: Female
  Weight: 104.5 kg

DRUGS (1)
  1. POMALYST (POMALIDOMIDE) (4 MILLIGRAM, CAPSULES) [Suspect]
     Indication: PLASMA CELL MYELOMA
     Route: 048
     Dates: start: 20140116

REACTIONS (4)
  - Hypoaesthesia [None]
  - Stomatitis [None]
  - Back pain [None]
  - Dyspnoea [None]
